FAERS Safety Report 21523179 (Version 2)
Quarter: 2022Q4

REPORT INFORMATION
  Report Type: Report from Study
  Country: US (occurrence: US)
  Receive Date: 20221029
  Receipt Date: 20221123
  Transmission Date: 20230112
  Serious: No
  Sender: FDA-Public Use
  Company Number: US-ABBVIE-4164008

PATIENT
  Sex: Male

DRUGS (3)
  1. SKYRIZI [Suspect]
     Active Substance: RISANKIZUMAB-RZAA
     Indication: Psoriasis
     Route: 058
  2. Moderna [Concomitant]
     Indication: COVID-19 immunisation
     Dosage: ONE IN ONCE, 1ST DOSE
     Route: 030
     Dates: start: 20210204, end: 20210204
  3. Moderna [Concomitant]
     Indication: COVID-19 immunisation
     Dosage: ONE IN ONCE , 2ND DOSE
     Dates: start: 20211203, end: 20211203

REACTIONS (1)
  - Psoriasis [Not Recovered/Not Resolved]
